FAERS Safety Report 8261127-X (Version None)
Quarter: 2012Q2

REPORT INFORMATION
  Report Type: 
  Country: None (occurrence: None)
  Receive Date: 20120405
  Receipt Date: 20120402
  Transmission Date: 20120825
  Serious: Yes (Death, Hospitalization, Other)
  Sender: FDA-Public Use
  Company Number: PHEH2007US05544

PATIENT
  Sex: Female
  Weight: 167.8 kg

DRUGS (28)
  1. ENOXAPARIN [Concomitant]
  2. MORPHINE [Concomitant]
     Dosage: UNK
  3. ZOSYN [Concomitant]
     Dosage: 3.375G
     Route: 042
  4. NYSTATIN [Concomitant]
     Dosage: UNK, TID PRN
  5. DILAUDID [Concomitant]
     Dosage: 2 MG, UNK
  6. TYLENOL [Concomitant]
     Dosage: 650MG, Q6H PRN
     Route: 048
  7. AREDIA [Suspect]
     Route: 042
     Dates: start: 20020901, end: 20040501
  8. ZOLADEX [Concomitant]
  9. METOPROLOL TARTRATE [Concomitant]
  10. MORPHINE [Concomitant]
     Dosage: UNK
     Dates: start: 20070424
  11. ALBUTEROL [Concomitant]
     Dosage: 2 PUFS
     Dates: start: 20070424
  12. LEVOXYL [Concomitant]
     Dosage: 50MG, ONCE DAILY
     Dates: start: 20070523
  13. ZOMETA [Suspect]
     Route: 042
     Dates: start: 20020814, end: 20020814
  14. PERCOCET [Concomitant]
  15. ARIMIDEX [Concomitant]
  16. AROMASIN [Concomitant]
     Dates: start: 20040101
  17. XELODA [Concomitant]
  18. SYNTHROID [Concomitant]
     Dosage: 50MCG, ONCE DAILY
     Dates: start: 20070425
  19. ATIVAN [Concomitant]
     Dosage: UNK
     Dates: start: 20070424
  20. POTASSIUM CHLORIDE [Concomitant]
     Dosage: 20 MEQ,
     Dates: start: 20070706
  21. DOCUSATE [Concomitant]
     Dosage: UNK,
     Route: 048
  22. LASIX [Concomitant]
     Dosage: 40MG,
     Dates: start: 20070708
  23. OXYCODONE HCL [Concomitant]
  24. ADVAIR DISKUS 100/50 [Concomitant]
     Dosage: 250/50 MG,Q12 H
     Dates: start: 20070425
  25. SENOKOT [Concomitant]
     Dosage: UNK
  26. PHYTONADIONE [Concomitant]
     Dosage: 10MG, ONCE DAILY
     Route: 048
  27. PROTONIX [Concomitant]
     Dosage: 40MG,
  28. PHAZYME [Concomitant]
     Dosage: 80MG
     Dates: start: 20070707

REACTIONS (45)
  - DYSPNOEA [None]
  - PLEURAL EFFUSION [None]
  - INJURY [None]
  - PYREXIA [None]
  - SPINAL COMPRESSION FRACTURE [None]
  - METASTASES TO LUNG [None]
  - BLOOD GLUCOSE INCREASED [None]
  - HUMERUS FRACTURE [None]
  - DIZZINESS [None]
  - OEDEMA PERIPHERAL [None]
  - SYNCOPE [None]
  - SKIN LESION [None]
  - PAIN [None]
  - INFUSION RELATED REACTION [None]
  - METASTASES TO BONE [None]
  - SPINAL OSTEOARTHRITIS [None]
  - METASTASES TO SPINE [None]
  - WHEEZING [None]
  - ASPIRATION PLEURAL CAVITY [None]
  - ASTHENIA [None]
  - ATELECTASIS [None]
  - NEOPLASM PROGRESSION [None]
  - CLAVICLE FRACTURE [None]
  - INTERVERTEBRAL DISC SPACE NARROWING [None]
  - PULMONARY EMBOLISM [None]
  - LUNG CONSOLIDATION [None]
  - DEEP VEIN THROMBOSIS [None]
  - TYPE 2 DIABETES MELLITUS [None]
  - OSTEONECROSIS OF JAW [None]
  - FALL [None]
  - HIP FRACTURE [None]
  - METASTASES TO LYMPH NODES [None]
  - METASTATIC PAIN [None]
  - ARTHRALGIA [None]
  - TOOTH INJURY [None]
  - CHILLS [None]
  - METASTATIC NEOPLASM [None]
  - INSPIRATORY CAPACITY DECREASED [None]
  - PNEUMONIA [None]
  - RIB FRACTURE [None]
  - MYALGIA [None]
  - GROIN PAIN [None]
  - DEATH [None]
  - ANXIETY [None]
  - BONE PAIN [None]
